FAERS Safety Report 4478851-7 (Version None)
Quarter: 2004Q4

REPORT INFORMATION
  Report Type: 
  Country: None (occurrence: None)
  Receive Date: 20041013
  Receipt Date: 20040927
  Transmission Date: 20050328
  Serious: Yes (Life-Threatening, Disabling)
  Sender: FDA-Public Use
  Company Number: 2004AP04916

PATIENT
  Age: 76 Year
  Sex: Male

DRUGS (6)
  1. NAROPIN [Suspect]
  2. THIAMYLAL SODIUM [Concomitant]
  3. FENTANYL CITRATE [Concomitant]
  4. VECURONIUM BROMIDE [Concomitant]
  5. OXYGEN [Concomitant]
  6. ISOFLURANE [Concomitant]

REACTIONS (6)
  - BLOOD PRESSURE FLUCTUATION [None]
  - POST PROCEDURAL COMPLICATION [None]
  - SHOCK [None]
  - SICK SINUS SYNDROME [None]
  - SINUS ARREST [None]
  - SUPRAVENTRICULAR TACHYCARDIA [None]
